FAERS Safety Report 7229475-X (Version None)
Quarter: 2011Q1

REPORT INFORMATION
  Report Type: 
  Country: None (occurrence: None)
  Receive Date: 20110117
  Receipt Date: 20100107
  Transmission Date: 20110831
  Serious: No
  Sender: FDA-Public Use
  Company Number: US-TYCO HEALTHCARE/MALLINCKRODT-T201000330

PATIENT
  Sex: Female

DRUGS (2)
  1. OPTIRAY 350 [Suspect]
     Indication: COMPUTERISED TOMOGRAM
     Dosage: UNK UNK, SINGLE
     Route: 042
     Dates: start: 20100105, end: 20100105
  2. OPTIRAY 350 [Suspect]
     Dosage: UNK UNK, SINGLE
     Route: 042
     Dates: start: 20100105, end: 20100105

REACTIONS (1)
  - ACCIDENTAL EXPOSURE [None]
